FAERS Safety Report 7979086-3 (Version None)
Quarter: 2011Q4

REPORT INFORMATION
  Report Type: 
  Country: None (occurrence: None)
  Receive Date: 20111214
  Receipt Date: 20111211
  Transmission Date: 20120403
  Serious: No
  Sender: FDA-Public Use
  Company Number: US-PFIZER INC-2011301575

PATIENT
  Sex: Female
  Weight: 92.971 kg

DRUGS (3)
  1. IBUPROFEN (ADVIL) [Suspect]
     Indication: TOOTH EXTRACTION
     Dosage: 400 MG, DAILY
     Dates: start: 20111211
  2. TYLENOL W/ CODEINE NO. 3 [Concomitant]
     Indication: TOOTH EXTRACTION
     Dosage: UNK
     Dates: start: 20111210
  3. AMOXICILLIN [Concomitant]
     Indication: TOOTH EXTRACTION
     Dosage: UNK
     Dates: start: 20111210

REACTIONS (1)
  - PRURITUS [None]
